FAERS Safety Report 11091434 (Version 1)
Quarter: 2015Q2

REPORT INFORMATION
  Report Type: Report from Study
  Country: US (occurrence: US)
  Receive Date: 20150505
  Receipt Date: 20150505
  Transmission Date: 20150821
  Serious: Yes (Hospitalization)
  Sender: FDA-Public Use
  Company Number: US-009507513-1505USA000781

PATIENT
  Age: 42 Year
  Sex: Female

DRUGS (2)
  1. CARFILZOMIB [Suspect]
     Active Substance: CARFILZOMIB
     Indication: PLASMA CELL MYELOMA
     Dosage: 20 MG/M2, CYCLICAL DAY 1,2,8,9,15,16, DURATION 5 MONTHS
     Route: 042
     Dates: start: 20131209
  2. HEXADROL [Suspect]
     Active Substance: DEXAMETHASONE
     Indication: PLASMA CELL MYELOMA
     Dosage: 40 MG, CYCLICAL DAYS 1,8,15,22. DURATION 5 MONTHS
     Route: 048
     Dates: start: 20131209

REACTIONS (6)
  - Dyspnoea exertional [Recovered/Resolved]
  - Pneumonia [Unknown]
  - Heart valve incompetence [Unknown]
  - Dyspnoea at rest [Recovered/Resolved]
  - Chronic kidney disease [Unknown]
  - Cardiomyopathy [Unknown]

NARRATIVE: CASE EVENT DATE: 20140505
